FAERS Safety Report 7207389-9 (Version None)
Quarter: 2010Q4

REPORT INFORMATION
  Report Type: 
  Country: None (occurrence: None)
  Receive Date: 20101217
  Receipt Date: 20101210
  Transmission Date: 20110411
  Serious: Yes (Hospitalization)
  Sender: FDA-Public Use
  Company Number: MPS1-1000382

PATIENT
  Age: 11 Year
  Sex: Female
  Weight: 14 kg

DRUGS (1)
  1. ALDURAZYME [Suspect]
     Indication: MUCOPOLYSACCHARIDOSIS I
     Dates: start: 20100609

REACTIONS (2)
  - LUNG INFILTRATION [None]
  - PYREXIA [None]
